FAERS Safety Report 5442024-1 (Version None)
Quarter: 2007Q3

REPORT INFORMATION
  Report Type: 
  Country: None (occurrence: None)
  Receive Date: 20070904
  Receipt Date: 20070823
  Transmission Date: 20080115
  Serious: Yes (Life-Threatening, Hospitalization)
  Sender: FDA-Public Use
  Company Number: IE-ROCHE-494062

PATIENT
  Age: 45 Year
  Sex: Male
  Weight: 85.7 kg

DRUGS (2)
  1. XELODA [Suspect]
     Dosage: INDICATION REPORTED AS: BOWEL CANCER AND LIVER METS
     Route: 048
     Dates: start: 20070301, end: 20070426
  2. OXALIPLATIN [Suspect]
     Dosage: INDICATION REPORTED AS: BOWEL CANCER AND LIVER METS
     Route: 042

REACTIONS (4)
  - DIARRHOEA [None]
  - MUCOSAL INFLAMMATION [None]
  - PALMAR-PLANTAR ERYTHRODYSAESTHESIA SYNDROME [None]
  - PENILE ULCERATION [None]
